FAERS Safety Report 23400721 (Version 1)
Quarter: 2024Q1

REPORT INFORMATION
  Report Type: Spontaneous
  Country: GB (occurrence: GB)
  Receive Date: 20240115
  Receipt Date: 20240115
  Transmission Date: 20240409
  Serious: Yes (Other)
  Sender: FDA-Public Use
  Company Number: GB-ALISSA-3619

PATIENT

DRUGS (1)
  1. FLUTICASONE PROPIONATE [Suspect]
     Active Substance: FLUTICASONE PROPIONATE
     Indication: Product used for unknown indication
     Dosage: 50 UG (50 MICROGRAM/ACTUATION NASAL SPRAY, SUSPENSION )
     Dates: start: 20231218

REACTIONS (5)
  - Oropharyngeal pain [Recovered/Resolved]
  - Cough [Recovering/Resolving]
  - Productive cough [Recovering/Resolving]
  - Rhinorrhoea [Recovering/Resolving]
  - Asthma [Recovering/Resolving]

NARRATIVE: CASE EVENT DATE: 20231222
